FAERS Safety Report 9489589 (Version 1)
Quarter: 2013Q3

REPORT INFORMATION
  Report Type: Spontaneous
  Country: US (occurrence: US)
  Receive Date: 20130725
  Receipt Date: 20130725
  Transmission Date: 20140515
  Serious: Yes (Hospitalization)
  Sender: FDA-Public Use
  Company Number: US-GLAXOSMITHKLINE-A1001852A

PATIENT
  Age: 49 Year
  Sex: Male

DRUGS (1)
  1. AVANDIA [Suspect]
     Indication: DIABETES MELLITUS
     Route: 048
     Dates: start: 2007, end: 2010

REACTIONS (6)
  - Myocardial infarction [Not Recovered/Not Resolved]
  - Erectile dysfunction [Unknown]
  - Hypertension [Unknown]
  - Pruritus [Unknown]
  - Blood glucose increased [Unknown]
  - Headache [Unknown]
